FAERS Safety Report 7415313-9 (Version None)
Quarter: 2011Q2

REPORT INFORMATION
  Report Type: 
  Country: None (occurrence: None)
  Receive Date: 20110414
  Receipt Date: 20100609
  Transmission Date: 20111010
  Serious: No
  Sender: FDA-Public Use
  Company Number: US-MYLANLABS-2010S1010396

PATIENT
  Age: 83 Year
  Sex: Male
  Weight: 81.65 kg

DRUGS (1)
  1. VERAPAMIL EXTENDED-RELEASE [Suspect]
     Indication: HYPERTENSION
     Route: 048
     Dates: start: 20100501

REACTIONS (1)
  - HAEMATURIA [None]
